FAERS Safety Report 6491583-9 (Version None)
Quarter: 2009Q4

REPORT INFORMATION
  Report Type: 
  Country: None (occurrence: None)
  Receive Date: 20091125
  Receipt Date: 20090312
  Transmission Date: 20100525
  Serious: Yes (Hospitalization)
  Sender: FDA-Public Use
  Company Number: 2009BH003495

PATIENT
  Age: 51 Year
  Sex: Male
  Weight: 56.6996 kg

DRUGS (12)
  1. DIANEAL [Suspect]
     Indication: PERITONEAL DIALYSIS
     Dosage: 11.5 L ; EVERY DAY ; IP
     Route: 033
     Dates: start: 20070510
  2. DIANEAL [Suspect]
     Indication: PERITONEAL DIALYSIS
     Dosage: ; EVERY DAY ; IP
     Route: 033
     Dates: start: 20070510
  3. HEPARIN [Concomitant]
  4. PHOSLO [Concomitant]
  5. RENVELA [Concomitant]
  6. FLAXSEED [Concomitant]
  7. SYNTHROID [Concomitant]
  8. LIPITOR [Concomitant]
  9. COLACE [Concomitant]
  10. GENTAMICIN CREAM [Concomitant]
  11. NU IRON [Concomitant]
  12. EPOGEN [Concomitant]

REACTIONS (5)
  - BLOODY PERITONEAL EFFLUENT [None]
  - PERITONEAL DIALYSIS COMPLICATION [None]
  - PERITONITIS BACTERIAL [None]
  - RASH [None]
  - RETCHING [None]
